FAERS Safety Report 26203080 (Version 1)
Quarter: 2025Q4

REPORT INFORMATION
  Report Type: Report from Study
  Country: CA (occurrence: CA)
  Receive Date: 20251226
  Receipt Date: 20251226
  Transmission Date: 20260118
  Serious: Yes (Other)
  Sender: ABBVIE
  Company Number: CA-ABBVIE-6604170

PATIENT
  Sex: Male

DRUGS (1)
  1. SKYRIZI [Suspect]
     Active Substance: RISANKIZUMAB-RZAA
     Indication: Psoriasis
     Dosage: LAST DOSE: 14 OCT 2025
     Route: 058
     Dates: start: 20220614

REACTIONS (2)
  - Joint dislocation [Not Recovered/Not Resolved]
  - Tendon rupture [Not Recovered/Not Resolved]
